FAERS Safety Report 12853149 (Version 1)
Quarter: 2016Q4

REPORT INFORMATION
  Report Type: Spontaneous
  Country: US (occurrence: US)
  Receive Date: 20161014
  Receipt Date: 20161014
  Transmission Date: 20170207
  Serious: No
  Sender: FDA-Public Use
  Company Number: None

PATIENT

DRUGS (2)
  1. LUPRON DEPOT [Suspect]
     Active Substance: LEUPROLIDE ACETATE
  2. LUPRON DEPOT 3.75 [Concomitant]

REACTIONS (1)
  - Injury associated with device [None]

NARRATIVE: CASE EVENT DATE: 20161012
